FAERS Safety Report 8073285-0 (Version None)
Quarter: 2012Q1

REPORT INFORMATION
  Report Type: 
  Country: None (occurrence: None)
  Receive Date: 20120120
  Receipt Date: 20120104
  Transmission Date: 20120608
  Serious: Yes (Death)
  Sender: FDA-Public Use
  Company Number: 1158732

PATIENT
  Age: 63 Year
  Sex: Male

DRUGS (1)
  1. VINCRISTINE SULFATE [Suspect]
     Dosage: APPROXIMATELY 15 ML (2 MG)

REACTIONS (12)
  - MENTAL STATUS CHANGES [None]
  - PUPILS UNEQUAL [None]
  - CHEST X-RAY ABNORMAL [None]
  - VOMITING [None]
  - WHITE BLOOD CELL COUNT DECREASED [None]
  - MUSCULAR WEAKNESS [None]
  - WRONG DRUG ADMINISTERED [None]
  - NAUSEA [None]
  - MALAISE [None]
  - QUADRIPLEGIA [None]
  - MEDICATION ERROR [None]
  - DEVICE OCCLUSION [None]
